FAERS Safety Report 20396330 (Version 2)
Quarter: 2022Q1

REPORT INFORMATION
  Report Type: Spontaneous
  Country: US (occurrence: None)
  Receive Date: 20220130
  Receipt Date: 20220204
  Transmission Date: 20220423
  Serious: No
  Sender: FDA-Public Use
  Company Number: 2022A044961

PATIENT
  Age: 11 Year
  Sex: Male
  Weight: 59 kg

DRUGS (4)
  1. SEROQUEL [Suspect]
     Active Substance: QUETIAPINE FUMARATE
     Indication: Oppositional defiant disorder
     Route: 048
     Dates: start: 2019, end: 2021
  2. SEROQUEL [Suspect]
     Active Substance: QUETIAPINE FUMARATE
     Indication: Disruptive mood dysregulation disorder
     Route: 048
     Dates: start: 2019, end: 2021
  3. SEROQUEL [Suspect]
     Active Substance: QUETIAPINE FUMARATE
     Indication: Attention deficit hyperactivity disorder
     Route: 048
     Dates: start: 2019, end: 2021
  4. VYVANSE [Concomitant]
     Active Substance: LISDEXAMFETAMINE DIMESYLATE
     Indication: Attention deficit hyperactivity disorder
     Route: 065

REACTIONS (6)
  - Aggression [Unknown]
  - Hypersomnia [Unknown]
  - Fatigue [Unknown]
  - Sleep deficit [Unknown]
  - Intentional dose omission [Unknown]
  - Medication error [Unknown]

NARRATIVE: CASE EVENT DATE: 20190101
